FAERS Safety Report 18504030 (Version 1)
Quarter: 2020Q4

REPORT INFORMATION
  Report Type: Spontaneous
  Country: US (occurrence: US)
  Receive Date: 20201113
  Receipt Date: 20201113
  Transmission Date: 20210114
  Serious: No
  Sender: FDA-Public Use
  Company Number: US-NOVOPROD-693579

PATIENT
  Age: 54 Year
  Sex: Male

DRUGS (1)
  1. FIASP [Suspect]
     Active Substance: INSULIN ASPART
     Indication: PRODUCT USED FOR UNKNOWN INDICATION
     Dosage: WITH EACH MEAL
     Route: 058
     Dates: start: 20191018

REACTIONS (5)
  - Feeling abnormal [Recovered/Resolved]
  - Blood glucose abnormal [Recovering/Resolving]
  - Condition aggravated [Recovered/Resolved]
  - Liquid product physical issue [Unknown]
  - Neuropathy peripheral [Recovered/Resolved]

NARRATIVE: CASE EVENT DATE: 201910
